FAERS Safety Report 16429956 (Version 1)
Quarter: 2019Q2

REPORT INFORMATION
  Report Type: Spontaneous
  Country: US (occurrence: US)
  Receive Date: 20190614
  Receipt Date: 20190614
  Transmission Date: 20190711
  Serious: No
  Sender: FDA-Public Use
  Company Number: US-BIOGEN-2019BI00751339

PATIENT
  Age: 28 Year
  Sex: Male

DRUGS (1)
  1. TECFIDERA [Suspect]
     Active Substance: DIMETHYL FUMARATE
     Indication: MULTIPLE SCLEROSIS
     Route: 048

REACTIONS (6)
  - Eructation [Unknown]
  - Flatulence [Unknown]
  - Mood swings [Unknown]
  - Abdominal discomfort [Unknown]
  - Depressed mood [Unknown]
  - Vomiting [Unknown]

NARRATIVE: CASE EVENT DATE: 20190612
